FAERS Safety Report 18309621 (Version 1)
Quarter: 2020Q3

REPORT INFORMATION
  Report Type: Spontaneous
  Country: US (occurrence: US)
  Receive Date: 20200924
  Receipt Date: 20200924
  Transmission Date: 20201103
  Serious: Yes (Other)
  Sender: FDA-Public Use
  Company Number: US-PFIZER INC-2020365902

PATIENT
  Age: 32 Year
  Sex: Male
  Weight: 80 kg

DRUGS (15)
  1. ALFENTANIL HYDROCHLORIDE. [Interacting]
     Active Substance: ALFENTANIL HYDROCHLORIDE
     Dosage: 50 UG, (FOUR BOLUS DOSES, OVER 20 MIN PERIOD)
     Route: 040
  2. NEOMYCIN. [Concomitant]
     Active Substance: NEOMYCIN
     Indication: PROPHYLAXIS
     Dosage: 3000 MG, 1 GRAM THREE TIMES OVER A 24?H PERIOD BEFORE SURGERY
     Route: 048
  3. ERYTHROMYCIN. [Interacting]
     Active Substance: ERYTHROMYCIN
     Indication: LAPAROTOMY
  4. SUCCINYLCHOLINE BROMIDE [Concomitant]
     Active Substance: SUXAMETHONIUM BROMIDE
     Indication: ENDOTRACHEAL INTUBATION
     Dosage: 120 MG
  5. ALFENTANIL HYDROCHLORIDE. [Interacting]
     Active Substance: ALFENTANIL HYDROCHLORIDE
     Dosage: 3.0 UG (KG^1 + MIN^1 MAINTAINED FOR 45 MIN)
  6. ERYTHROMYCIN. [Interacting]
     Active Substance: ERYTHROMYCIN
     Indication: PROPHYLAXIS
     Dosage: 3000 MG, 1 GRAM THREE TIMES OVER A 24?H PERIOD BEFORE SURGERY
  7. DIAZEPAM. [Concomitant]
     Active Substance: DIAZEPAM
     Indication: LAPAROTOMY
     Dosage: 10 MG (1H)
     Route: 048
  8. PANCURONIUM [Concomitant]
     Active Substance: PANCURONIUM
     Indication: INDUCTION OF ANAESTHESIA
     Dosage: 1.6 MG
  9. ALFENTANIL HYDROCHLORIDE. [Interacting]
     Active Substance: ALFENTANIL HYDROCHLORIDE
     Dosage: 1.5 MG, (KG^1 + MIN^1)
  10. NEOMYCIN. [Concomitant]
     Active Substance: NEOMYCIN
     Indication: LAPAROTOMY
  11. PANCURONIUM [Concomitant]
     Active Substance: PANCURONIUM
     Dosage: TOTAL 9.5 MG IN FIVE DOSES
  12. ALFENTANIL HYDROCHLORIDE. [Interacting]
     Active Substance: ALFENTANIL HYDROCHLORIDE
     Dosage: 1.0 UG, (KG^1 + MIN^1 DECREASED OVER THE NEXT 30 MIN)
  13. THIOPENTAL [Concomitant]
     Active Substance: THIOPENTAL
     Indication: INDUCTION OF ANAESTHESIA
     Dosage: 175 MG
  14. NITROUS OXIDE. [Concomitant]
     Active Substance: NITROUS OXIDE
     Indication: ANAESTHESIA
     Dosage: 67 %
  15. ALFENTANIL HYDROCHLORIDE. [Suspect]
     Active Substance: ALFENTANIL HYDROCHLORIDE
     Indication: INDUCTION OF ANAESTHESIA
     Dosage: 4 MG (INFUSION)

REACTIONS (2)
  - Drug interaction [Recovering/Resolving]
  - Respiratory depression [Recovering/Resolving]
